FAERS Safety Report 10985178 (Version 1)
Quarter: 2015Q2

REPORT INFORMATION
  Report Type: Spontaneous
  Country: US (occurrence: None)
  Receive Date: 20150403
  Receipt Date: 20150403
  Transmission Date: 20150821
  Serious: No
  Sender: FDA-Public Use
  Company Number: None

PATIENT
  Age: 42 Year
  Sex: Male

DRUGS (1)
  1. HUMIRA [Suspect]
     Active Substance: ADALIMUMAB
     Indication: RHEUMATOID ARTHRITIS
     Dosage: 40 MG, Q2W
     Route: 058
     Dates: start: 20120114, end: 20141016

REACTIONS (4)
  - Thrombosis [None]
  - Renal disorder [None]
  - Drug ineffective [None]
  - Pulmonary thrombosis [None]

NARRATIVE: CASE EVENT DATE: 20141128
